FAERS Safety Report 16038562 (Version 1)
Quarter: 2019Q1

REPORT INFORMATION
  Report Type: Spontaneous
  Country: US (occurrence: US)
  Receive Date: 20190305
  Receipt Date: 20190305
  Transmission Date: 20190418
  Serious: No
  Sender: FDA-Public Use
  Company Number: US-BRISTOL-MYERS SQUIBB COMPANY-BMS-2019-021073

PATIENT
  Age: 83 Year
  Sex: Male

DRUGS (4)
  1. METFORMIN HYDROCHLORIDE. [Suspect]
     Active Substance: METFORMIN HYDROCHLORIDE
     Indication: PRODUCT USED FOR UNKNOWN INDICATION
     Dosage: 500 MG, BID
     Route: 065
  2. INSULIN [Concomitant]
     Active Substance: INSULIN NOS
     Indication: PRODUCT USED FOR UNKNOWN INDICATION
     Dosage: UNK
     Route: 065
  3. XTANDI [Suspect]
     Active Substance: ENZALUTAMIDE
     Indication: PROSTATE CANCER
     Dosage: 160 MG, UNK
     Route: 065
     Dates: start: 20171108
  4. LEUPROLIDE                         /00726901/ [Concomitant]
     Active Substance: LEUPROLIDE
     Indication: PRODUCT USED FOR UNKNOWN INDICATION
     Dosage: UNK
     Route: 065

REACTIONS (9)
  - Abdominal pain [Recovering/Resolving]
  - Musculoskeletal pain [Recovering/Resolving]
  - Diarrhoea [Unknown]
  - Rash pruritic [Recovered/Resolved]
  - Chest pain [Recovering/Resolving]
  - Constipation [Unknown]
  - Bone pain [Unknown]
  - Abdominal discomfort [Unknown]
  - Somnolence [Unknown]

NARRATIVE: CASE EVENT DATE: 201808
